FAERS Safety Report 12350288 (Version 6)
Quarter: 2021Q3

REPORT INFORMATION
  Report Type: Spontaneous
  Country: US (occurrence: US)
  Receive Date: 20160510
  Receipt Date: 20210702
  Transmission Date: 20211014
  Serious: Yes (Other)
  Sender: FDA-Public Use
  Company Number: US-PFIZER INC-2016216996

PATIENT
  Age: 71 Year
  Sex: Female

DRUGS (2)
  1. LYRICA [Suspect]
     Active Substance: PREGABALIN
     Indication: AUTONOMIC NEUROPATHY
     Dosage: UNK
     Dates: start: 2014
  2. LYRICA [Suspect]
     Active Substance: PREGABALIN
     Dosage: 300 MG, 2X/DAY

REACTIONS (7)
  - Gait disturbance [Unknown]
  - Dizziness [Recovered/Resolved]
  - Dissociation [Recovered/Resolved]
  - Withdrawal syndrome [Unknown]
  - Illness [Recovering/Resolving]
  - Senile dementia [Unknown]
  - Visual impairment [Unknown]
